FAERS Safety Report 4349846-9 (Version None)
Quarter: 2004Q2

REPORT INFORMATION
  Report Type: 
  Country: None (occurrence: None)
  Receive Date: 20040426
  Receipt Date: 20040420
  Transmission Date: 20050107
  Serious: Yes (Other)
  Sender: FDA-Public Use
  Company Number: 2004-04-1064

PATIENT
  Age: 33 Year
  Sex: Male

DRUGS (3)
  1. AERIUS (DESLORATADINE) TABLETS 'LIKE CLARINEX' [Suspect]
     Indication: BLEPHARITIS
     Dates: start: 20040320
  2. CELESTONE [Suspect]
     Indication: DRUG USE FOR UNKNOWN INDICATION
  3. NASACORT [Suspect]
     Indication: DRUG USE FOR UNKNOWN INDICATION

REACTIONS (3)
  - DRY MOUTH [None]
  - FATIGUE [None]
  - TOXIC SKIN ERUPTION [None]
